FAERS Safety Report 9156171 (Version 1)
Quarter: 2013Q1

REPORT INFORMATION
  Report Type: Spontaneous
  Country: US (occurrence: US)
  Receive Date: 20130123
  Receipt Date: 20130123
  Transmission Date: 20140127
  Serious: No
  Sender: FDA-Public Use
  Company Number: US-BRACCO-007999

PATIENT
  Age: 52 Year
  Sex: Male
  Weight: 72 kg

DRUGS (2)
  1. MULTIHANCE [Suspect]
     Indication: ABDOMINAL PAIN
     Route: 042
     Dates: start: 20120430, end: 20120430
  2. MULTIHANCE [Suspect]
     Indication: NUCLEAR MAGNETIC RESONANCE IMAGING ABDOMINAL
     Route: 042
     Dates: start: 20120430, end: 20120430

REACTIONS (2)
  - Rhinitis allergic [Recovered/Resolved]
  - Sneezing [Recovered/Resolved]
